FAERS Safety Report 9281884 (Version 1)
Quarter: 2013Q2

REPORT INFORMATION
  Report Type: Report from Study
  Country: JP (occurrence: JP)
  Receive Date: 20130510
  Receipt Date: 20130510
  Transmission Date: 20140414
  Serious: Yes (Other)
  Sender: FDA-Public Use
  Company Number: JP-009507513-1305JPN004589

PATIENT
  Age: 53 Year
  Sex: Female
  Weight: 67 kg

DRUGS (19)
  1. PEGINTRON [Suspect]
     Indication: CHRONIC HEPATITIS C
     Dosage: 1.5 MICROGRAM PER KILOGRAM, QW
     Route: 058
     Dates: start: 20120403, end: 20120618
  2. PEGINTRON [Suspect]
     Dosage: 0.75 MICROGRAM PER KILOGRAM, QW
     Route: 058
     Dates: start: 20120625, end: 20120708
  3. PEGINTRON [Suspect]
     Dosage: 1.5 MICROGRAM PER KILOGRAM, QW
     Route: 058
     Dates: start: 20120709, end: 20120910
  4. REBETOL [Suspect]
     Indication: CHRONIC HEPATITIS C
     Dosage: 800 MG, QD
     Route: 048
     Dates: start: 20120403, end: 20120423
  5. REBETOL [Suspect]
     Dosage: 400 MG, QD
     Route: 048
     Dates: start: 20120424, end: 20120603
  6. REBETOL [Suspect]
     Dosage: 200 MG, QD
     Route: 048
     Dates: start: 20120604, end: 20120806
  7. REBETOL [Suspect]
     Dosage: 400 MG, QD
     Route: 048
     Dates: start: 20120807, end: 20120917
  8. TELAVIC [Suspect]
     Indication: CHRONIC HEPATITIS C
     Dosage: 2250 MG, QD
     Route: 048
     Dates: start: 20120403, end: 20120625
  9. JZOLOFT [Concomitant]
     Indication: DEPRESSION
     Dosage: 50 MG, QD, POR
     Route: 048
  10. REFLEX [Concomitant]
     Indication: DEPRESSION
     Dosage: 15 MG, QD, POR
     Route: 048
  11. REFLEX [Concomitant]
     Indication: INSOMNIA
  12. ALESION [Concomitant]
     Indication: RHINITIS ALLERGIC
     Dosage: 10 MG, PRN
     Route: 048
  13. ALESION [Concomitant]
     Indication: PRURITUS
     Dosage: 10 MG/DAY, AS NEEDED, POR
     Route: 048
     Dates: start: 20120423
  14. ALESION [Concomitant]
     Indication: RHINITIS ALLERGIC
  15. PRIMPERAN [Concomitant]
     Indication: NAUSEA
     Dosage: 5 MG, /DAY PRN
     Route: 048
     Dates: start: 20120423
  16. TAKEPRON [Concomitant]
     Indication: GASTROOESOPHAGEAL REFLUX DISEASE
     Dosage: 15 MG, QD, POR
     Route: 048
     Dates: start: 20120507
  17. TAKEPRON [Concomitant]
     Indication: GASTRITIS
     Dosage: 15 MG/DAY, AS NEEDED, POR
     Route: 048
  18. CALONAL [Concomitant]
     Indication: HEADACHE
     Dosage: 400 MG/DAY, AS NEEDED, POR
     Route: 048
     Dates: start: 20120507
  19. RESTAMIN [Concomitant]
     Indication: XERODERMA
     Dosage: 5 G, QD
     Route: 062
     Dates: start: 20120615, end: 20121130

REACTIONS (1)
  - Rheumatoid arthritis [Recovering/Resolving]
